FAERS Safety Report 4803491-7 (Version None)
Quarter: 2005Q4

REPORT INFORMATION
  Report Type: 
  Country: None (occurrence: None)
  Receive Date: 20051013
  Receipt Date: 20051004
  Transmission Date: 20060501
  Serious: Yes (Life-Threatening, Hospitalization, Other)
  Sender: FDA-Public Use
  Company Number: 200414814BCC

PATIENT
  Age: 58 Year
  Sex: Male
  Weight: 106.1417 kg

DRUGS (8)
  1. ALEVE (CAPLET) [Suspect]
     Indication: HEADACHE
     Dosage: 440 MG, ONCE, ORAL
     Route: 048
     Dates: start: 20031222
  2. ANTIHYPERTENSIVE [Concomitant]
  3. ANTI-DIABETICS [Concomitant]
  4. MULTI-VITAMIN [Concomitant]
  5. GLUCOPHAGE [Concomitant]
  6. CARDIZEM [Concomitant]
  7. LIPITOR [Concomitant]
  8. METERED DOSE INHALER [Concomitant]

REACTIONS (25)
  - ABDOMINAL PAIN UPPER [None]
  - ANAEMIA [None]
  - ANOREXIA [None]
  - ASTHENIA [None]
  - BLOOD GLUCOSE INCREASED [None]
  - CARDIAC FAILURE CONGESTIVE [None]
  - CHEST DISCOMFORT [None]
  - DISEASE RECURRENCE [None]
  - DIZZINESS [None]
  - DRUG HYPERSENSITIVITY [None]
  - ELECTROCARDIOGRAM ST-T CHANGE [None]
  - EPIGASTRIC DISCOMFORT [None]
  - GASTRIC ULCER HAEMORRHAGE [None]
  - HELICOBACTER INFECTION [None]
  - HYPERHIDROSIS [None]
  - INFLUENZA [None]
  - LOSS OF CONSCIOUSNESS [None]
  - MUSCLE TIGHTNESS [None]
  - MYOCARDIAL INFARCTION [None]
  - MYOCARDIAL ISCHAEMIA [None]
  - PALLOR [None]
  - PNEUMONIA [None]
  - RECTAL HAEMORRHAGE [None]
  - SMALL INTESTINAL HAEMORRHAGE [None]
  - SYNCOPE [None]
